FAERS Safety Report 7586490-4 (Version None)
Quarter: 2011Q3

REPORT INFORMATION
  Report Type: 
  Country: None (occurrence: None)
  Receive Date: 20110701
  Receipt Date: 20110623
  Transmission Date: 20111222
  Serious: Yes (Hospitalization)
  Sender: FDA-Public Use
  Company Number: US-ROCHE-763941

PATIENT
  Sex: Female
  Weight: 81.6 kg

DRUGS (10)
  1. SPIRONOLACTONE [Concomitant]
     Route: 048
  2. ACTEMRA [Suspect]
     Dosage: FORM: INFUSION
     Route: 042
     Dates: start: 20101213, end: 20101213
  3. COUMADIN [Concomitant]
     Route: 048
  4. METHOTREXATE SODIUM [Concomitant]
     Dosage: DOSE: 25MG/ML
     Dates: start: 20110103
  5. PREDNISONE [Concomitant]
     Dates: start: 20110104
  6. ACTEMRA [Suspect]
     Route: 042
     Dates: start: 20110112, end: 20110112
  7. ACTEMRA [Suspect]
     Route: 042
     Dates: start: 20110222, end: 20110222
  8. TYLENOL-500 [Concomitant]
     Route: 048
  9. IBUPROFEN [Concomitant]
     Route: 048
  10. PERCOCET [Concomitant]
     Route: 048

REACTIONS (8)
  - ACUTE RIGHT VENTRICULAR FAILURE [None]
  - ANAEMIA [None]
  - WEIGHT INCREASED [None]
  - URTICARIA [None]
  - ARTHRALGIA [None]
  - PHARYNGEAL OEDEMA [None]
  - PULMONARY HYPERTENSION [None]
  - VENOUS THROMBOSIS [None]
